FAERS Safety Report 24654287 (Version 1)
Quarter: 2024Q4

REPORT INFORMATION
  Report Type: Spontaneous
  Country: US (occurrence: US)
  Receive Date: 20241122
  Receipt Date: 20241122
  Transmission Date: 20250115
  Serious: No
  Sender: GALDERMA
  Company Number: US-GALDERMA-US2024015538

PATIENT

DRUGS (1)
  1. NEMLUVIO [Suspect]
     Active Substance: NEMOLIZUMAB-ILTO
     Indication: Neurodermatitis
     Dosage: 60 MILLIGRAMS, INJECTED IN THE ABDOMEN
     Route: 058
     Dates: start: 20240925

REACTIONS (13)
  - Dysuria [Unknown]
  - Lymphadenopathy [Unknown]
  - Haemorrhoids [Unknown]
  - Back pain [Unknown]
  - Abdominal pain lower [Unknown]
  - Groin pain [Unknown]
  - Penile pain [Unknown]
  - Urinary tract infection [Recovered/Resolved]
  - Pyrexia [Unknown]
  - Serum sickness [Unknown]
  - Bladder spasm [Unknown]
  - Complex regional pain syndrome [Unknown]
  - Condition aggravated [Unknown]

NARRATIVE: CASE EVENT DATE: 20240926
